FAERS Safety Report 11830917 (Version 1)
Quarter: 2015Q4

REPORT INFORMATION
  Report Type: Spontaneous
  Country: TR (occurrence: TR)
  Receive Date: 20151214
  Receipt Date: 20151214
  Transmission Date: 20160305
  Serious: Yes (Hospitalization, Other)
  Sender: FDA-Public Use
  Company Number: TR-ACCORD-036212

PATIENT
  Age: 28 Year
  Sex: Male

DRUGS (4)
  1. ETOPOSIDE. [Suspect]
     Active Substance: ETOPOSIDE
     Indication: TESTIS CANCER
     Dosage: 5 DAY REGIMEN ON DAYS 1 AND 5. THE CHEMOTHERAPY WAS REPEATED EVERY 21 DAYS, MAXIMUM 4 CYCLES
  2. BLEOMYCIN [Suspect]
     Active Substance: BLEOMYCIN SULFATE
     Indication: TESTIS CANCER
     Dosage: ON DAYS 1, 8 AND 15 OF EACH COURSE. THE CHEMOTHERAPY WAS REPEATED EVERY 21 DAYS, MAXIMUM 4 CYCLES.
  3. CISPLATIN. [Suspect]
     Active Substance: CISPLATIN
     Indication: TESTIS CANCER
     Dosage: 5 DAY REGIMEN ON DAYS 1 AND 5. THE CHEMOTHERAPY WAS REPEATED EVERY 21 DAYS, MAXIMUM 4 CYCLES.
  4. NADROPARIN [Concomitant]
     Active Substance: NADROPARIN
     Indication: THROMBOSIS PROPHYLAXIS
     Dosage: 3800 IU ANTI-XA, ONCE A DAY
     Route: 058

REACTIONS (1)
  - Myocardial infarction [Recovered/Resolved]
